FAERS Safety Report 4575533-8 (Version None)
Quarter: 2005Q1

REPORT INFORMATION
  Report Type: 
  Country: None (occurrence: None)
  Receive Date: 20050131
  Receipt Date: 20050131
  Transmission Date: 20050727
  Serious: Yes (Other)
  Sender: FDA-Public Use
  Company Number: None

PATIENT

DRUGS (3)
  1. OXALIPLATIN 169MG IVPB OF 14 D [Suspect]
     Indication: COLON CANCER
     Route: 042
     Dates: start: 20041122
  2. LEUCOVORIN CALCIUM [Concomitant]
  3. FLUOROURACIL [Concomitant]

REACTIONS (3)
  - FEELING ABNORMAL [None]
  - JOINT STIFFNESS [None]
  - PAIN IN JAW [None]
